FAERS Safety Report 21264626 (Version 5)
Quarter: 2022Q4

REPORT INFORMATION
  Report Type: Other
  Country: None (occurrence: US)
  Receive Date: 20220829
  Receipt Date: 20221201
  Transmission Date: 20230113
  Serious: Yes (Hospitalization)
  Sender: FDA-Public Use
  Company Number: US-Mission Pharmacal Company-2132317

PATIENT
  Age: 61 Year
  Sex: Male

DRUGS (9)
  1. THIOLA EC [Suspect]
     Active Substance: TIOPRONIN
     Indication: Ureterolithiasis
     Route: 048
     Dates: start: 20220311
  2. METFORMIN [Concomitant]
     Active Substance: METFORMIN HYDROCHLORIDE
  3. ATORVASTATIN [Concomitant]
     Active Substance: ATORVASTATIN
  4. TRAZODONE [Concomitant]
     Active Substance: TRAZODONE HYDROCHLORIDE
  5. MAXIDEX [Concomitant]
     Active Substance: DEXAMETHASONE
  6. VORICONAZOLE [Concomitant]
     Active Substance: VORICONAZOLE
  7. NATAMYCIN [Concomitant]
     Active Substance: NATAMYCIN
  8. MOXIFLOXACIN [Concomitant]
     Active Substance: MOXIFLOXACIN
  9. CYCLOPENTOLATE [Concomitant]
     Active Substance: CYCLOPENTOLATE

REACTIONS (4)
  - Blindness [Unknown]
  - Eye infection fungal [Unknown]
  - Product dose omission issue [Unknown]
  - Skin irritation [Unknown]
